FAERS Safety Report 4887962-3 (Version None)
Quarter: 2006Q1

REPORT INFORMATION
  Report Type: 
  Country: None (occurrence: None)
  Receive Date: 20060119
  Receipt Date: 20060106
  Transmission Date: 20060701
  Serious: Yes (Hospitalization)
  Sender: FDA-Public Use
  Company Number: KII-2006-0020577

PATIENT
  Age: 65 Year
  Sex: Female

DRUGS (7)
  1. MORPHINE SULFATE [Suspect]
     Dosage: ORAL
     Route: 048
  2. PROMETHAZINE [Suspect]
     Dosage: ORAL
     Route: 048
  3. LOVASTATIN [Suspect]
     Dosage: ORAL
  4. PROTON PUMP INHIBITOR () [Suspect]
  5. GLIPIZIDE [Suspect]
  6. METFORMIN HCL [Suspect]
     Indication: DIABETES MELLITUS
  7. POTASSIUM (POTASSIUM) [Suspect]
     Dosage: ORAL
     Route: 048

REACTIONS (9)
  - BLOOD GLUCOSE DECREASED [None]
  - BLOOD GLUCOSE INCREASED [None]
  - CONFUSIONAL STATE [None]
  - DISORIENTATION [None]
  - INCOHERENT [None]
  - LETHARGY [None]
  - MULTIPLE DRUG OVERDOSE [None]
  - OVERDOSE [None]
  - SYNCOPE [None]
